FAERS Safety Report 17281984 (Version 1)
Quarter: 2020Q1

REPORT INFORMATION
  Report Type: Spontaneous
  Country: GB (occurrence: GB)
  Receive Date: 20200117
  Receipt Date: 20200117
  Transmission Date: 20200409
  Serious: Yes (Death, Hospitalization, Disabling)
  Sender: FDA-Public Use
  Company Number: GB-TEVA-2018-GB-986007

PATIENT
  Age: 81 Year
  Sex: Female

DRUGS (5)
  1. BEZAFIBRATE [Concomitant]
     Active Substance: BEZAFIBRATE
  2. BECLOMETASONE [Concomitant]
     Active Substance: BECLOMETHASONE DIPROPIONATE
  3. TRELEGY ELLIPTA [Concomitant]
     Active Substance: FLUTICASONE FUROATE\UMECLIDINIUM BROMIDE\VILANTEROL TRIFENATATE
  4. NITROFURANTOIN. [Suspect]
     Active Substance: NITROFURANTOIN
     Indication: PROPHYLAXIS URINARY TRACT INFECTION
     Route: 048
     Dates: start: 2012
  5. BISOPROLOL FUMARATE. [Concomitant]
     Active Substance: BISOPROLOL FUMARATE

REACTIONS (5)
  - Dyspnoea exertional [Fatal]
  - Interstitial lung disease [Fatal]
  - Pulmonary fibrosis [Fatal]
  - Dyspnoea [Fatal]
  - Pulmonary vasculitis [Fatal]
